FAERS Safety Report 9065260 (Version 1)
Quarter: 2013Q1

REPORT INFORMATION
  Report Type: Spontaneous
  Country: TR (occurrence: TR)
  Receive Date: 20130214
  Receipt Date: 20130214
  Transmission Date: 20140127
  Serious: Yes (Other)
  Sender: FDA-Public Use
  Company Number: 2013SP002259

PATIENT
  Age: 55 Year
  Sex: Male

DRUGS (12)
  1. FLUOROURACIL [Suspect]
     Indication: NASOPHARYNGEAL CANCER
  2. FLUOROURACIL [Suspect]
     Indication: NON-SMALL CELL LUNG CANCER
  3. FLUOROURACIL [Suspect]
     Indication: METASTASES TO BONE
  4. FLUOROURACIL [Suspect]
     Indication: METASTASES TO LYMPH NODES
  5. DOCETAXEL [Suspect]
     Indication: NASOPHARYNGEAL CANCER
  6. DOCETAXEL [Suspect]
     Indication: NON-SMALL CELL LUNG CANCER
  7. DOCETAXEL [Suspect]
     Indication: METASTASES TO BONE
  8. DOCETAXEL [Suspect]
     Indication: METASTASES TO LYMPH NODES
  9. CISPLATIN [Suspect]
     Indication: NASOPHARYNGEAL CANCER
  10. CISPLATIN [Suspect]
     Indication: NON-SMALL CELL LUNG CANCER
  11. CISPLATIN [Suspect]
     Indication: METASTASES TO BONE
  12. CISPLATIN [Suspect]
     Indication: METASTASES TO LYMPH NODES

REACTIONS (1)
  - Pericarditis [Recovered/Resolved]
